FAERS Safety Report 11511031 (Version 3)
Quarter: 2016Q1

REPORT INFORMATION
  Report Type: Spontaneous
  Country: US (occurrence: US)
  Receive Date: 20150915
  Receipt Date: 20160106
  Transmission Date: 20160525
  Serious: Yes (Other)
  Sender: FDA-Public Use
  Company Number: US-ASTRAZENECA-2015SE87411

PATIENT
  Sex: Female
  Weight: 69.9 kg

DRUGS (19)
  1. JANUVIA [Concomitant]
     Active Substance: SITAGLIPTIN PHOSPHATE
     Indication: TYPE 2 DIABETES MELLITUS
     Route: 048
  2. ISOSORBIDE. [Concomitant]
     Active Substance: ISOSORBIDE
     Dosage: DAILY, GENERIC
     Route: 048
  3. ISOSORBIDE. [Concomitant]
     Active Substance: ISOSORBIDE
     Route: 048
  4. SIMVASTATIN. [Concomitant]
     Active Substance: SIMVASTATIN
     Route: 048
  5. MONOPRIL [Concomitant]
     Active Substance: FOSINOPRIL SODIUM
     Dosage: DAILY, GENERIC
     Route: 048
  6. SYNTHROID [Concomitant]
     Active Substance: LEVOTHYROXINE SODIUM
     Route: 048
  7. NORTRIPTYLINE HYDROCHLORIDE. [Concomitant]
     Active Substance: NORTRIPTYLINE HYDROCHLORIDE
     Route: 048
  8. KRISTALOSE [Concomitant]
     Active Substance: LACTULOSE
  9. PLAVIX [Concomitant]
     Active Substance: CLOPIDOGREL BISULFATE
     Dosage: DAILY, GENERIC
     Route: 048
  10. MONOPRIL [Concomitant]
     Active Substance: FOSINOPRIL SODIUM
     Route: 048
  11. GLYBURIDE-METFORMIN [Concomitant]
     Dosage: 2.5 + 500 MG
     Route: 048
  12. FARXIGA [Suspect]
     Active Substance: DAPAGLIFLOZIN PROPANEDIOL
     Indication: TYPE 2 DIABETES MELLITUS
     Route: 048
  13. STOOL SOFTENER [Concomitant]
     Active Substance: DOCUSATE CALCIUM
     Route: 048
  14. FARXIGA [Suspect]
     Active Substance: DAPAGLIFLOZIN PROPANEDIOL
     Indication: TYPE 2 DIABETES MELLITUS
     Route: 048
     Dates: start: 201504
  15. SYNTHROID [Concomitant]
     Active Substance: LEVOTHYROXINE SODIUM
     Route: 048
  16. PLAVIX [Concomitant]
     Active Substance: CLOPIDOGREL BISULFATE
     Route: 048
  17. CARVEDILOL. [Concomitant]
     Active Substance: CARVEDILOL
     Indication: BLOOD PRESSURE ABNORMAL
     Route: 048
  18. METFORMIN [Concomitant]
     Active Substance: METFORMIN HYDROCHLORIDE
     Indication: TYPE 2 DIABETES MELLITUS
     Route: 048
  19. WATER PILL [Concomitant]
     Active Substance: UNSPECIFIED INGREDIENT

REACTIONS (7)
  - Gastrointestinal infection [Unknown]
  - Pneumonia [Unknown]
  - Weight decreased [Unknown]
  - Blood glucose abnormal [Unknown]
  - Malaise [Unknown]
  - Influenza like illness [Unknown]
  - Abdominal discomfort [Unknown]
